FAERS Safety Report 5633130-7 (Version None)
Quarter: 2008Q1

REPORT INFORMATION
  Report Type: 
  Country: None (occurrence: None)
  Receive Date: 20080221
  Receipt Date: 20080211
  Transmission Date: 20080703
  Serious: Yes (Hospitalization, Other)
  Sender: FDA-Public Use
  Company Number: US-AVENTIS-200612457US

PATIENT
  Sex: Male
  Weight: 97.5 kg

DRUGS (7)
  1. KETEK [Suspect]
     Indication: BRONCHITIS
     Route: 048
     Dates: start: 20060202, end: 20060206
  2. ZYRTEC-D 12HR [Concomitant]
     Dosage: DOSE: 50/120
     Dates: start: 20060202
  3. LEVSIN [Concomitant]
     Route: 048
  4. FLONASE [Concomitant]
     Dosage: DOSE: 2 SPRAYS IN EACH NOSTRIL
     Route: 045
  5. ZELNORM [Concomitant]
     Dosage: DOSE: 1 TABLET BEFORE MEALS
  6. AUGMENTIN '125' [Concomitant]
     Route: 048
     Dates: start: 20060206, end: 20060213
  7. AUGMENTIN '125' [Concomitant]
     Route: 048
     Dates: start: 20060317

REACTIONS (20)
  - ABDOMINAL DISTENSION [None]
  - ABDOMINAL PAIN UPPER [None]
  - ALANINE AMINOTRANSFERASE INCREASED [None]
  - ASCITES [None]
  - ASPARTATE AMINOTRANSFERASE INCREASED [None]
  - ASTHENIA [None]
  - BLOOD BILIRUBIN INCREASED [None]
  - BLOOD GLUCOSE INCREASED [None]
  - FATIGUE [None]
  - HEPATITIS [None]
  - HEPATOTOXICITY [None]
  - HYPERHIDROSIS [None]
  - INTERNATIONAL NORMALISED RATIO INCREASED [None]
  - JAUNDICE [None]
  - NAUSEA [None]
  - PLEURAL EFFUSION [None]
  - PYREXIA [None]
  - VARICES OESOPHAGEAL [None]
  - VISION BLURRED [None]
  - VOMITING [None]
